FAERS Safety Report 8858662 (Version 3)
Quarter: 2013Q1

REPORT INFORMATION
  Report Type: Spontaneous
  Country: US (occurrence: US)
  Receive Date: 20121024
  Receipt Date: 20130128
  Transmission Date: 20140127
  Serious: Yes (Hospitalization)
  Sender: FDA-Public Use
  Company Number: US-BAYER-2012-111162

PATIENT
  Age: 36 Year
  Sex: Female
  Weight: 77.1 kg

DRUGS (5)
  1. OCELLA [Suspect]
     Indication: ACNE
     Dosage: UNK
     Dates: start: 200809, end: 20091028
  2. OCELLA [Suspect]
     Indication: CONTRACEPTION
  3. NAPROXEN [Concomitant]
  4. ANTIBIOTICS [Concomitant]
  5. MOTRIN [Concomitant]

REACTIONS (7)
  - Pulmonary embolism [None]
  - Injury [None]
  - Pain [None]
  - Pain [None]
  - Chest pain [None]
  - Dyspnoea [None]
  - Insomnia [None]
